FAERS Safety Report 6160393-4 (Version None)
Quarter: 2009Q2

REPORT INFORMATION
  Report Type: 
  Country: None (occurrence: None)
  Receive Date: 20090420
  Receipt Date: 20090416
  Transmission Date: 20091009
  Serious: Yes (Death)
  Sender: FDA-Public Use
  Company Number: JP-JNJFOC-20090404380

PATIENT
  Age: 83 Year
  Sex: Male

DRUGS (7)
  1. ITRIZOLE [Suspect]
     Indication: BRONCHOPULMONARY ASPERGILLOSIS
     Route: 041
  2. CLARITH [Concomitant]
     Route: 048
  3. FINIBAX [Concomitant]
     Route: 050
  4. ONEALFA [Concomitant]
     Route: 048
  5. GRAN [Concomitant]
     Route: 048
  6. GASTER D [Concomitant]
     Route: 048
  7. LASIX [Concomitant]
     Route: 048

REACTIONS (3)
  - CARDIAC FAILURE [None]
  - HYPERCAPNIA [None]
  - HYPOXIA [None]
